FAERS Safety Report 23891558 (Version 1)
Quarter: 2024Q2

REPORT INFORMATION
  Report Type: Spontaneous
  Country: JP (occurrence: JP)
  Receive Date: 20240524
  Receipt Date: 20240524
  Transmission Date: 20240715
  Serious: Yes (Hospitalization, Other)
  Sender: FDA-Public Use
  Company Number: JP-TAKEDA-2024TJP007334

PATIENT
  Age: 84 Year
  Sex: Female

DRUGS (2)
  1. ROZEREM [Suspect]
     Active Substance: RAMELTEON
     Indication: Delirium
     Dosage: 8 MILLIGRAM
     Route: 048
  2. DAYVIGO [Suspect]
     Active Substance: LEMBOREXANT
     Indication: Delirium
     Dosage: 5 MILLIGRAM
     Route: 048

REACTIONS (5)
  - Speech disorder [Unknown]
  - Eating disorder [Unknown]
  - Oedema [Unknown]
  - Blood albumin increased [Unknown]
  - Off label use [Unknown]
